FAERS Safety Report 26025201 (Version 1)
Quarter: 2025Q4

REPORT INFORMATION
  Report Type: Spontaneous
  Country: GB (occurrence: GB)
  Receive Date: 20251111
  Receipt Date: 20251111
  Transmission Date: 20260118
  Serious: Yes (Other)
  Sender: MICRO LABS LIMITED
  Company Number: None

PATIENT
  Age: 71 Year
  Sex: Female
  Weight: 53 kg

DRUGS (5)
  1. LOSARTAN [Suspect]
     Active Substance: LOSARTAN
     Indication: Adverse drug reaction
     Dosage: 25MG ONCE A DAY IN THE MORNING
  2. CO-DYDRAMOL [Concomitant]
     Active Substance: ACETAMINOPHEN\DIHYDROCODEINE
     Indication: Radiculopathy
  3. PREGABALIN [Concomitant]
     Active Substance: PREGABALIN
     Indication: Radiculopathy
  4. BECLOMETHASONE [Concomitant]
     Active Substance: BECLOMETHASONE
     Indication: Adverse drug reaction
  5. BLISSEL [Concomitant]
     Indication: Product used for unknown indication

REACTIONS (5)
  - Radicular pain [Recovered/Resolved]
  - Neuralgia [Recovered/Resolved]
  - Abdominal distension [Recovered/Resolved]
  - Bladder pain [Recovered/Resolved]
  - Back pain [Recovered/Resolved]

NARRATIVE: CASE EVENT DATE: 20250901
